FAERS Safety Report 22037474 (Version 1)
Quarter: 2023Q1

REPORT INFORMATION
  Report Type: Spontaneous
  Country: US (occurrence: US)
  Receive Date: 20230226
  Receipt Date: 20230226
  Transmission Date: 20230417
  Serious: No
  Sender: FDA-Public Use
  Company Number: US-Accord-261161

PATIENT
  Sex: Male
  Weight: 70.31 kg

DRUGS (1)
  1. BUSPIRONE HYDROCHLORIDE [Suspect]
     Active Substance: BUSPIRONE HYDROCHLORIDE
     Indication: Migraine
     Dosage: DOSE: 7.5MG TABLETS THREE TIMES DAILY?(INITIAL DOSE: 15MG THREE TIMES DAILY)
     Route: 048

REACTIONS (2)
  - Disturbance in attention [Not Recovered/Not Resolved]
  - Off label use [Unknown]
